FAERS Safety Report 11868067 (Version 1)
Quarter: 2015Q4

REPORT INFORMATION
  Report Type: Spontaneous
  Country: US (occurrence: None)
  Receive Date: 20151223
  Receipt Date: 20151223
  Transmission Date: 20160305
  Serious: Yes (Other)
  Sender: FDA-Public Use
  Company Number: None

PATIENT
  Age: 17 Year
  Sex: Male

DRUGS (3)
  1. GUANFACINE HCL [Suspect]
     Active Substance: GUANFACINE HYDROCHLORIDE
     Indication: ATTENTION DEFICIT/HYPERACTIVITY DISORDER
     Dosage: 4MG/1PILL
     Route: 048
     Dates: start: 20151028, end: 20151220
  2. TRAZODONE [Concomitant]
     Active Substance: TRAZODONE HYDROCHLORIDE
  3. FLINTSTONES VITAMINS [Concomitant]

REACTIONS (4)
  - Depression [None]
  - Suicidal ideation [None]
  - Overdose [None]
  - Product substitution issue [None]

NARRATIVE: CASE EVENT DATE: 20151220
